FAERS Safety Report 15280784 (Version 1)
Quarter: 2018Q3

REPORT INFORMATION
  Report Type: Spontaneous
  Country: NO (occurrence: NO)
  Receive Date: 20180815
  Receipt Date: 20180815
  Transmission Date: 20181010
  Serious: Yes (Hospitalization, Other)
  Sender: FDA-Public Use
  Company Number: NO-GLAXOSMITHKLINE-NO2018147102

PATIENT
  Age: 35 Week
  Sex: Male
  Weight: 2.21 kg

DRUGS (3)
  1. ACITRETIN. [Suspect]
     Active Substance: ACITRETIN
     Indication: ICHTHYOSIS
     Dosage: 0.5 MG/KG, QD
     Route: 048
  2. ACITRETIN. [Suspect]
     Active Substance: ACITRETIN
     Dosage: 1.3 TO 1.4MG/ KG/D FOR THE LAST 14 DAYS PRIOR TO IDENTIFICATION OF THE FRACTURES
     Route: 048
  3. ACITRETIN. [Suspect]
     Active Substance: ACITRETIN
     Dosage: 1 MG/KG, QD
     Route: 048

REACTIONS (2)
  - Multiple fractures [Recovered/Resolved]
  - Osteopenia [Recovered/Resolved]
